FAERS Safety Report 11169371 (Version 1)
Quarter: 2015Q2

REPORT INFORMATION
  Report Type: Spontaneous
  Country: US (occurrence: US)
  Receive Date: 20150605
  Receipt Date: 20150605
  Transmission Date: 20150821
  Serious: Yes (Hospitalization, Other)
  Sender: FDA-Public Use
  Company Number: US-GLAXOSMITHKLINE INC.-US2015GSK077165

PATIENT
  Sex: Female

DRUGS (2)
  1. REVATIO [Concomitant]
     Active Substance: SILDENAFIL CITRATE
  2. FLOLAN [Suspect]
     Active Substance: EPOPROSTENOL SODIUM
     Indication: PULMONARY HYPERTENSION
     Dosage: 22 NG/KG/MIN, CO
     Route: 042
     Dates: start: 20090528

REACTIONS (9)
  - Dyspnoea [Unknown]
  - Visual impairment [Unknown]
  - Heart rate increased [Unknown]
  - Paraesthesia [Unknown]
  - Back pain [Unknown]
  - Myocardial infarction [Unknown]
  - Musculoskeletal pain [Unknown]
  - Lung disorder [Unknown]
  - Pancreatic cyst [Unknown]
